FAERS Safety Report 5418337-6 (Version None)
Quarter: 2007Q3

REPORT INFORMATION
  Report Type: 
  Country: None (occurrence: None)
  Receive Date: 20070817
  Receipt Date: 20070807
  Transmission Date: 20080115
  Serious: Yes (Hospitalization)
  Sender: FDA-Public Use
  Company Number: JP-SANOFI-SYNTHELABO-A01200707063

PATIENT
  Sex: Male
  Weight: 56.8 kg

DRUGS (14)
  1. TICLOPIDINE HCL [Concomitant]
     Indication: DRUG USE FOR UNKNOWN INDICATION
     Dosage: UNK
     Route: 065
  2. ARGATROBAN [Concomitant]
     Indication: DRUG USE FOR UNKNOWN INDICATION
     Dosage: INFUSION 40 MG
     Route: 065
     Dates: start: 20070616, end: 20070621
  3. ASPIRIN [Concomitant]
     Indication: CEREBROVASCULAR ACCIDENT PROPHYLAXIS
     Dosage: UNK
     Route: 065
     Dates: start: 20061125, end: 20070616
  4. EVIPROSTAT [Concomitant]
     Indication: DRUG USE FOR UNKNOWN INDICATION
     Dosage: 6 DF
     Route: 048
     Dates: start: 20070629
  5. LIPITOR [Concomitant]
     Indication: DRUG USE FOR UNKNOWN INDICATION
     Dosage: 10 MG
     Route: 048
     Dates: start: 20070629
  6. DIOVAN [Concomitant]
     Indication: DRUG USE FOR UNKNOWN INDICATION
     Dosage: 20 MG
     Route: 048
     Dates: start: 20070629
  7. ACETAMINOPHEN [Concomitant]
     Indication: TOOTH DISORDER
     Dosage: 500 MG
     Route: 048
     Dates: start: 20070623, end: 20070624
  8. ACETAMINOPHEN [Concomitant]
     Indication: STOMATITIS
     Dosage: 500 MG
     Route: 048
     Dates: start: 20070623, end: 20070624
  9. LENDORMIN [Concomitant]
     Indication: DRUG USE FOR UNKNOWN INDICATION
     Dosage: 0.25 MG
     Route: 048
     Dates: start: 20070622, end: 20070623
  10. PLAVIX [Suspect]
     Indication: CEREBRAL INFARCTION
     Route: 048
     Dates: start: 20070621, end: 20070628
  11. KENALOG [Concomitant]
     Indication: TOOTH DISORDER
     Dosage: 1 TUBE DAILY
     Route: 065
     Dates: start: 20070626
  12. KENALOG [Concomitant]
     Indication: STOMATITIS
     Dosage: 1 TUBE DAILY
     Route: 065
     Dates: start: 20070626
  13. HACHIAZULE [Concomitant]
     Indication: TOOTH DISORDER
     Dosage: 2 G
     Route: 065
     Dates: start: 20070626
  14. HACHIAZULE [Concomitant]
     Indication: STOMATITIS
     Dosage: 2 G
     Route: 065
     Dates: start: 20070626

REACTIONS (1)
  - NEUTROPHIL COUNT INCREASED [None]
